FAERS Safety Report 7771742-5 (Version None)
Quarter: 2011Q3

REPORT INFORMATION
  Report Type: 
  Country: None (occurrence: None)
  Receive Date: 20110922
  Receipt Date: 20110921
  Transmission Date: 20111222
  Serious: Yes (Hospitalization)
  Sender: FDA-Public Use
  Company Number: CH-PFIZER INC-2011215077

PATIENT
  Age: 78 Year
  Sex: Male

DRUGS (6)
  1. MARCUMAR [Concomitant]
     Dosage: UNK
  2. VIBRAMYCIN [Suspect]
     Indication: AORTITIS
     Dosage: 100 MG, 3X/DAY
     Route: 048
     Dates: start: 20110530, end: 20110708
  3. BISOPROLOL FUMARATE [Concomitant]
     Dosage: UNK
  4. PANTOPRAZOLE [Concomitant]
     Dosage: UNK
  5. CRESTOR [Concomitant]
     Dosage: UNK
  6. PLAQUENIL [Suspect]
     Indication: AORTITIS
     Dosage: 100 MG, 3X/DAY
     Route: 048
     Dates: start: 20110530, end: 20110708

REACTIONS (1)
  - CHOLESTATIC LIVER INJURY [None]
